FAERS Safety Report 5640126-8 (Version None)
Quarter: 2008Q1

REPORT INFORMATION
  Report Type: 
  Country: None (occurrence: None)
  Receive Date: 20080226
  Receipt Date: 20080226
  Transmission Date: 20080703
  Serious: No
  Sender: FDA-Public Use
  Company Number: None

PATIENT
  Sex: Female
  Weight: 61.2356 kg

DRUGS (5)
  1. MIRTAZAPINE [Suspect]
     Indication: DEPRESSION
     Dosage: 15 MG DAILY PO
     Route: 048
     Dates: start: 20071110, end: 20080124
  2. TRAVATAN [Concomitant]
  3. SYNTHROID [Concomitant]
  4. PREMARIN [Concomitant]
  5. DIAZAPAM [Concomitant]

REACTIONS (1)
  - AMNESIA [None]
